FAERS Safety Report 9347456 (Version 1)
Quarter: 2013Q2

REPORT INFORMATION
  Report Type: Spontaneous
  Country: FI (occurrence: FI)
  Receive Date: 20130614
  Receipt Date: 20130614
  Transmission Date: 20140414
  Serious: Yes (Hospitalization, Other)
  Sender: FDA-Public Use
  Company Number: FI-ROCHE-1234949

PATIENT
  Sex: Male

DRUGS (8)
  1. MABTHERA [Suspect]
     Indication: B-CELL LYMPHOMA
     Route: 065
  2. MABTHERA [Suspect]
     Route: 065
     Dates: start: 20130219
  3. MABTHERA [Suspect]
     Route: 065
     Dates: start: 20130319
  4. MABTHERA [Suspect]
     Route: 065
     Dates: start: 20130423, end: 20130423
  5. BENDAMUSTINE [Concomitant]
     Indication: B-CELL LYMPHOMA
     Route: 065
  6. BENDAMUSTINE [Concomitant]
     Route: 065
     Dates: start: 20130219
  7. BENDAMUSTINE [Concomitant]
     Route: 065
     Dates: start: 20130319
  8. BENDAMUSTINE [Concomitant]
     Route: 065
     Dates: start: 20130507

REACTIONS (2)
  - Movement disorder [Recovered/Resolved]
  - Joint stiffness [Recovered/Resolved]
